FAERS Safety Report 21318112 (Version 1)
Quarter: 2022Q3

REPORT INFORMATION
  Report Type: Spontaneous
  Country: US (occurrence: US)
  Receive Date: 20220911
  Receipt Date: 20220911
  Transmission Date: 20221027
  Serious: No
  Sender: FDA-Public Use
  Company Number: US-SA-SAC20220829002153

PATIENT
  Sex: Female
  Weight: 61 kg

DRUGS (5)
  1. DUPIXENT [Suspect]
     Active Substance: DUPILUMAB
     Indication: Dermatitis atopic
     Dosage: QOW
     Route: 058
     Dates: start: 202207
  2. TRIAMCINOLONE ACETONIDE [Concomitant]
     Active Substance: TRIAMCINOLONE ACETONIDE
  3. DESONIDE [Concomitant]
     Active Substance: DESONIDE
  4. MIRENA [Concomitant]
     Active Substance: LEVONORGESTREL
     Dosage: 20MCG/24HR IUD
  5. ALEVE [Concomitant]
     Active Substance: NAPROXEN SODIUM

REACTIONS (1)
  - Hypersensitivity [Not Recovered/Not Resolved]
